FAERS Safety Report 8925785 (Version 2)
Quarter: 2012Q4

REPORT INFORMATION
  Report Type: Report from Study
  Country: US (occurrence: US)
  Receive Date: 20121126
  Receipt Date: 20121127
  Transmission Date: 20130627
  Serious: Yes (Other)
  Sender: FDA-Public Use
  Company Number: US-ABBOTT-12P-163-1010673-00

PATIENT
  Age: 38 Year
  Sex: Female

DRUGS (13)
  1. HUMIRA [Suspect]
     Indication: CROHN^S DISEASE
     Dates: start: 2010
  2. HUMIRA [Suspect]
  3. SULFASALAZINE [Concomitant]
     Indication: PRODUCT USED FOR UNKNOWN INDICATION
  4. FLAGYL [Concomitant]
     Indication: PROPHYLAXIS
     Dosage: 1-2 a day
  5. FLAGYL [Concomitant]
     Indication: ABSCESS
  6. METOPROLOL [Concomitant]
     Indication: HEART RATE INCREASED
     Dosage: Daily
  7. HYDROCODONE [Concomitant]
     Indication: PAIN
  8. HYDROCODONE [Concomitant]
     Indication: CROHN^S DISEASE
  9. B COMPLEX VITAMIN [Concomitant]
     Indication: PRODUCT USED FOR UNKNOWN INDICATION
     Dosage: Daily
  10. PROBIOTICS [Concomitant]
     Indication: PRODUCT USED FOR UNKNOWN INDICATION
     Dosage: Daily
  11. VITAMIN D [Concomitant]
     Indication: PRODUCT USED FOR UNKNOWN INDICATION
     Dosage: Daily
  12. MULTIVITAMIN [Concomitant]
     Indication: PRODUCT USED FOR UNKNOWN INDICATION
     Dosage: Daily
  13. BIOTIN [Concomitant]
     Indication: PRODUCT USED FOR UNKNOWN INDICATION
     Dosage: Daily

REACTIONS (9)
  - Ovarian cyst [Not Recovered/Not Resolved]
  - Abscess [Unknown]
  - Pain [Unknown]
  - Diarrhoea [Unknown]
  - Abscess [Unknown]
  - Gastrooesophageal reflux disease [Unknown]
  - Crohn^s disease [Unknown]
  - Abdominal pain [Unknown]
  - Blood iron decreased [Unknown]
